FAERS Safety Report 10017853 (Version 1)
Quarter: 2014Q1

REPORT INFORMATION
  Report Type: Spontaneous
  Country: US (occurrence: None)
  Receive Date: 20140312
  Receipt Date: 20140312
  Transmission Date: 20141002
  Serious: Yes (Other)
  Sender: FDA-Public Use
  Company Number: ADR-2014-00229

PATIENT
  Age: 76 Year
  Sex: Male
  Weight: 68.04 kg

DRUGS (18)
  1. BACLOFEN [Suspect]
     Indication: CANCER PAIN
     Dosage: DAY
     Dates: start: 2010
  2. BUPIVACAINE [Suspect]
     Dosage: DAY
  3. DILAUDID [Suspect]
     Dosage: DAY
  4. SENNA [Suspect]
  5. BUPROPION HCL [Suspect]
  6. GABAPENTIN [Suspect]
  7. MAGNESIUM OXIDE [Suspect]
  8. MONTELUKAST SOD [Suspect]
  9. ASPIRIN EC [Suspect]
  10. CELEXA [Suspect]
  11. CETIRIZINE HCL [Suspect]
  12. NAPROXEN [Suspect]
  13. ANALGESIC [Suspect]
  14. BIOTIN [Suspect]
  15. CALMOSEPTINE [Suspect]
  16. GUAIFENESIN [Suspect]
  17. MORPHINE SULFATE IR TABLET [Suspect]
  18. MS CONTIN CR [Suspect]

REACTIONS (13)
  - Device power source issue [None]
  - Poor dental condition [None]
  - Malnutrition [None]
  - Pain [None]
  - Gait disturbance [None]
  - Gait disturbance [None]
  - Posture abnormal [None]
  - Fall [None]
  - Rib fracture [None]
  - Blister [None]
  - Quality of life decreased [None]
  - Decreased activity [None]
  - Device malfunction [None]
